FAERS Safety Report 4709628-2 (Version None)
Quarter: 2005Q3

REPORT INFORMATION
  Report Type: 
  Country: None (occurrence: None)
  Receive Date: 20050706
  Receipt Date: 20050706
  Transmission Date: 20060218
  Serious: Yes (Life-Threatening, Hospitalization)
  Sender: FDA-Public Use
  Company Number: None

PATIENT
  Age: 60 Year
  Sex: Male
  Weight: 140 kg

DRUGS (14)
  1. LITHIUM CARBONATE [Suspect]
     Indication: BIPOLAR DISORDER
     Dosage: 600MG   BID   ORAL
     Route: 048
     Dates: start: 19931027, end: 20050629
  2. ALBUTEROL [Concomitant]
  3. ASPIRIN [Concomitant]
  4. CARBAMAZEPINE [Concomitant]
  5. FEXOFENADINE HCL [Concomitant]
  6. LISINOPRIL [Concomitant]
  7. HYDROCHLOROTHIAZIDE [Concomitant]
  8. CLONIDINE [Concomitant]
  9. IBUPROFEN [Concomitant]
  10. LEVOTHYROXINE [Concomitant]
  11. METOPROLOL [Concomitant]
  12. MULTI-VITAMINS [Concomitant]
  13. SILDENAFIL [Concomitant]
  14. SIMVASTATIN [Concomitant]

REACTIONS (3)
  - DIARRHOEA [None]
  - DRUG TOXICITY [None]
  - RENAL FAILURE ACUTE [None]
